FAERS Safety Report 6673061-7 (Version None)
Quarter: 2010Q2

REPORT INFORMATION
  Report Type: 
  Country: None (occurrence: None)
  Receive Date: 20100408
  Receipt Date: 20100402
  Transmission Date: 20101027
  Serious: Yes (Death)
  Sender: FDA-Public Use
  Company Number: PHHY2010JP20915

PATIENT
  Sex: Male

DRUGS (4)
  1. ZOLEDRONATE T29581+ [Suspect]
     Indication: METASTASES TO BONE
     Dosage: 4 MG DILUTED TO 100 ML EVERY FOUR WEEKS
     Dates: start: 20071014, end: 20080212
  2. LOXONIN [Concomitant]
     Indication: CANCER PAIN
     Dosage: 60 MG, UNK
     Route: 048
     Dates: start: 20071006, end: 20080305
  3. MUCOSTA [Concomitant]
     Dosage: 100 MG, UNK
     Route: 048
     Dates: start: 20071006, end: 20080305
  4. ALLOPURINOL [Concomitant]
     Dosage: 100 MG, UNK
     Route: 048
     Dates: start: 20071016, end: 20080305

REACTIONS (1)
  - INTRACRANIAL TUMOUR HAEMORRHAGE [None]
